FAERS Safety Report 8458468-X (Version None)
Quarter: 2012Q2

REPORT INFORMATION
  Report Type: 
  Country: None (occurrence: None)
  Receive Date: 20120622
  Receipt Date: 20120616
  Transmission Date: 20120825
  Serious: Yes (Other)
  Sender: FDA-Public Use
  Company Number: US-BAYER-2012-048667

PATIENT
  Age: 55 Year
  Sex: Female

DRUGS (2)
  1. NEXAVAR [Suspect]
     Indication: HEPATIC NEOPLASM MALIGNANT
     Dosage: 400 MG, QD (IN PM)
     Dates: end: 20120615
  2. NEXAVAR [Suspect]
     Dosage: 400 MG, BID (INITIAL DOSE)
     Dates: start: 20120317

REACTIONS (3)
  - ASTHENIA [None]
  - MUSCULOSKELETAL PAIN [None]
  - FALL [None]
